APPROVED DRUG PRODUCT: CIMETIDINE HYDROCHLORIDE
Active Ingredient: CIMETIDINE HYDROCHLORIDE
Strength: EQ 300MG BASE/5ML
Dosage Form/Route: SOLUTION;ORAL
Application: A074664 | Product #001 | TE Code: AA
Applicant: PAI HOLDINGS LLC DBA PHARMACEUTICAL ASSOCIATES INC
Approved: Oct 28, 1997 | RLD: No | RS: Yes | Type: RX